FAERS Safety Report 7970965-X (Version None)
Quarter: 2011Q4

REPORT INFORMATION
  Report Type: 
  Country: None (occurrence: None)
  Receive Date: 20111212
  Receipt Date: 20111205
  Transmission Date: 20120403
  Serious: Yes (Other)
  Sender: FDA-Public Use
  Company Number: BR-BRISTOL-MYERS SQUIBB COMPANY-16156002

PATIENT
  Age: 68 Year
  Sex: Female
  Weight: 66 kg

DRUGS (7)
  1. EVISTA [Concomitant]
     Indication: ARTHRITIS
     Dosage: 1DF=1 TAB
     Route: 048
  2. LEXAPRO [Concomitant]
     Indication: ANXIOLYTIC THERAPY
     Dosage: 0.5 TAB A DAY(UNITS NOT SPECIFIED),LEXAPRO 10MG/TABS.
     Route: 048
  3. IRBESARTAN [Suspect]
     Indication: HYPERTENSION
     Dosage: 1 TAB.
     Route: 048
  4. CALCIUM PHOSPHATE [Concomitant]
     Indication: ARTHRITIS
     Dosage: 1 DF = 1 TABS A DAY
     Route: 048
  5. PHARMATON [Concomitant]
     Indication: VITAMIN SUPPLEMENTATION
     Dosage: 1DF=1 TABS
     Route: 048
  6. ARTROLIVE [Concomitant]
     Indication: ARTHRITIS
     Dosage: 1 TABS.
     Route: 048
  7. GLYCINE 1.5% [Concomitant]
     Indication: PHYTOTHERAPY
     Dosage: 1DF=1 TAB.
     Route: 048

REACTIONS (4)
  - CATARACT [None]
  - CHOLELITHIASIS [None]
  - FAECES DISCOLOURED [None]
  - RESTLESSNESS [None]
